FAERS Safety Report 22331212 (Version 1)
Quarter: 2023Q2

REPORT INFORMATION
  Report Type: Report from Study
  Country: US (occurrence: US)
  Receive Date: 20230517
  Receipt Date: 20230517
  Transmission Date: 20230721
  Serious: Yes (Hospitalization)
  Sender: FDA-Public Use
  Company Number: US-ASTELLAS-2023US014805

PATIENT
  Sex: Female

DRUGS (1)
  1. GILTERITINIB [Suspect]
     Active Substance: GILTERITINIB
     Indication: Acute myeloid leukaemia
     Route: 048
     Dates: start: 20230329

REACTIONS (8)
  - Heart rate increased [Unknown]
  - Heart rate irregular [Unknown]
  - Transfusion reaction [Unknown]
  - Illness [Unknown]
  - Emotional disorder [Unknown]
  - Asthenia [Unknown]
  - Laboratory test abnormal [Unknown]
  - Stress [Unknown]
